FAERS Safety Report 16236056 (Version 6)
Quarter: 2022Q1

REPORT INFORMATION
  Report Type: Report from Study
  Country: JP (occurrence: JP)
  Receive Date: 20190425
  Receipt Date: 20220314
  Transmission Date: 20220424
  Serious: Yes (Hospitalization, Disabling, Other)
  Sender: FDA-Public Use
  Company Number: JP-ALEXION PHARMACEUTICALS INC.-A201906095

PATIENT
  Age: 0 Year
  Sex: Male
  Weight: 2.5 kg

DRUGS (23)
  1. STRENSIQ [Suspect]
     Active Substance: ASFOTASE ALFA
     Indication: Hypophosphatasia
     Dosage: 2 MG/KG, TIW
     Route: 058
     Dates: start: 20190320
  2. ADCIRCA [Concomitant]
     Active Substance: TADALAFIL
     Indication: Pulmonary hypertension
     Dosage: 0.5 MG, QD
     Route: 048
     Dates: start: 20190803
  3. ALDACTONE                          /00006201/ [Concomitant]
     Indication: Pleural effusion
     Dosage: 2 MG/KG, DAILY
     Route: 065
     Dates: start: 20190325, end: 20190821
  4. ALFAROL [Concomitant]
     Active Substance: ALFACALCIDOL
     Indication: Product used for unknown indication
     Dosage: 0.2-0.6 ML/KG, DAILY
     Route: 065
     Dates: start: 20190313
  5. BOSENTAN [Concomitant]
     Active Substance: BOSENTAN
     Indication: Pulmonary hypertension
     Dosage: 1-4 MG/KG, BID
     Route: 048
     Dates: start: 20190701
  6. CALCIUM GLUCONATE [Concomitant]
     Active Substance: CALCIUM GLUCONATE
     Indication: Hypocalcaemia
     Dosage: 2-10 ML/KG, DAILY
     Route: 065
     Dates: start: 20190313
  7. CALCIUM LACTATE [Concomitant]
     Active Substance: CALCIUM LACTATE
     Indication: Hypophosphatasia
     Dosage: 1.1 G, TID
     Route: 048
     Dates: start: 20190315, end: 20191225
  8. CALCIUM LACTATE [Concomitant]
     Active Substance: CALCIUM LACTATE
     Indication: Hypocalcaemia
  9. DOBUTAMINE [Concomitant]
     Active Substance: DOBUTAMINE HYDROCHLORIDE
     Indication: Hypophosphatasia
     Dosage: 1-5G, CONTINUOUS INTRAVENOUS INFUSION
     Route: 041
     Dates: start: 20190313, end: 20190321
  10. DOPAMIN                            /00000101/ [Concomitant]
     Indication: Hypophosphatasia
     Dosage: 1-5G, CONTINUOUS INTRAVENOUS INFUSION
     Route: 041
     Dates: start: 20190313, end: 20190321
  11. FENTANYL [Concomitant]
     Active Substance: FENTANYL
     Indication: Hypophosphatasia
     Dosage: 1.2 ?G/KG, CONTINUOUS INTRAVENOUS INFUSION
     Route: 041
     Dates: start: 20190313, end: 20190324
  12. FUROSEMIDE [Concomitant]
     Active Substance: FUROSEMIDE
     Indication: Pleural effusion
     Dosage: 2 MG/KG, BID
     Route: 048
     Dates: start: 20190325, end: 20190821
  13. FUROSEMIDE [Concomitant]
     Active Substance: FUROSEMIDE
     Indication: Hypophosphatasia
     Dosage: 1-2 MG/KG, DAILY
     Route: 042
     Dates: start: 20190314, end: 20190820
  14. HYDROCORTISONE [Concomitant]
     Active Substance: HYDROCORTISONE
     Indication: Hypophosphatasia
     Dosage: UNK
     Route: 042
     Dates: start: 20190313, end: 20190711
  15. MIDAZOLAM [Concomitant]
     Active Substance: MIDAZOLAM
     Indication: Hypophosphatasia
     Dosage: 1.5 MG/KG, CONTINUOUS INTRAVENOUS INFUSION
     Route: 041
     Dates: start: 20190313, end: 20190918
  16. SODIUM PHOSPHATE, DIBASIC\SODIUM PHOSPHATE, MONOBASIC [Concomitant]
     Active Substance: SODIUM PHOSPHATE, DIBASIC\SODIUM PHOSPHATE, MONOBASIC
     Indication: Product used for unknown indication
     Dosage: 10-25 MG, DAILY
     Route: 065
     Dates: start: 20190313
  17. CANRENOATE POTASSIUM [Concomitant]
     Active Substance: CANRENOATE POTASSIUM
     Indication: Hypophosphatasia
     Dosage: 1-2 MG/KG/TIME, DAILY
     Route: 042
     Dates: start: 20190314, end: 20190820
  18. PYRIDOXAL [Concomitant]
     Active Substance: PYRIDOXAL
     Indication: Product used for unknown indication
     Dosage: 5 MG/KG, BID
     Route: 065
     Dates: start: 20190313
  19. SAMSCA [Concomitant]
     Active Substance: TOLVAPTAN
     Indication: Pleural effusion
     Dosage: 0.3 MG/KG, TID
     Route: 048
     Dates: start: 20190327, end: 20190520
  20. SODIUM PHOSPHATE [Concomitant]
     Active Substance: SODIUM PHOSPHATE
     Indication: Hypophosphatasia
     Dosage: UNK
     Route: 041
     Dates: start: 20190321, end: 20200107
  21. VITAMIN B COMPLEX [Concomitant]
     Active Substance: CYANOCOBALAMIN\DEXPANTHENOL\NIACINAMIDE\PYRIDOXINE HYDROCHLORIDE\RIBOFLAVIN 5^-PHOSPHATE SODIUM\THIA
     Indication: Hypophosphatasia
     Dosage: 0.3 DF, BID
     Route: 042
     Dates: start: 20190313, end: 20190405
  22. VITAMIN B6 [Concomitant]
     Active Substance: PYRIDOXINE HYDROCHLORIDE
     Indication: Hypophosphatasia
     Dosage: 10-20MG/KG/DAY, BID
     Route: 048
     Dates: start: 20190406
  23. VITAMIN D                          /00107901/ [Concomitant]
     Indication: Hypophosphatasia
     Dosage: UNK, QD
     Route: 048
     Dates: start: 20190318, end: 20190920

REACTIONS (4)
  - Pulmonary fibrosis [Recovering/Resolving]
  - Pneumonia [Recovering/Resolving]
  - Hypocalcaemia [Recovered/Resolved]
  - Motor developmental delay [Unknown]

NARRATIVE: CASE EVENT DATE: 20190320
